FAERS Safety Report 9282675 (Version 2)
Quarter: 2013Q2

REPORT INFORMATION
  Report Type: Spontaneous
  Country: US (occurrence: None)
  Receive Date: 20110202
  Receipt Date: 20130419
  Transmission Date: 20140414
  Serious: Yes (Life-Threatening, Other)
  Sender: FDA-Public Use
  Company Number: 54973 RSAE011311VM001

PATIENT
  Sex: Female

DRUGS (1)
  1. HYLAND^S TEETHING TABLETS [Suspect]
     Indication: TEETHING
     Dates: start: 201009

REACTIONS (8)
  - Agitation [None]
  - Dry skin [None]
  - Flushing [None]
  - Convulsion [None]
  - Product quality issue [None]
  - Nasopharyngitis [None]
  - Hepatomegaly [None]
  - Abnormal behaviour [None]
